FAERS Safety Report 16118933 (Version 3)
Quarter: 2019Q4

REPORT INFORMATION
  Report Type: Spontaneous
  Country: US (occurrence: US)
  Receive Date: 20190326
  Receipt Date: 20191218
  Transmission Date: 20200122
  Serious: Yes (Other)
  Sender: FDA-Public Use
  Company Number: US-PFIZER INC-2019127990

PATIENT
  Age: 75 Year
  Sex: Male
  Weight: 91 kg

DRUGS (5)
  1. RIFABUTIN. [Suspect]
     Active Substance: RIFABUTIN
     Indication: MYCOBACTERIUM AVIUM COMPLEX INFECTION
     Dosage: 150 MG, UNK (QUANTITY FOR 90 DAYS: 90)
  2. ETHAMBUTOL [Suspect]
     Active Substance: ETHAMBUTOL HYDROCHLORIDE
     Indication: PNEUMONIA
  3. OMNICEF [Concomitant]
     Active Substance: CEFDINIR
     Dosage: UNK
     Dates: start: 20190316
  4. RIFABUTIN. [Suspect]
     Active Substance: RIFABUTIN
     Indication: COUGH
     Dosage: 300 MG (2DF), 3X/WEEK
     Dates: start: 20180917
  5. ETHAMBUTOL [Suspect]
     Active Substance: ETHAMBUTOL HYDROCHLORIDE
     Indication: MYCOBACTERIUM AVIUM COMPLEX INFECTION
     Dosage: 1600 MG (4 DF), 3X/WEEK
     Dates: start: 20180906

REACTIONS (3)
  - Pneumonia [Not Recovered/Not Resolved]
  - Anal abscess [Unknown]
  - Off label use [Unknown]

NARRATIVE: CASE EVENT DATE: 20180917
